FAERS Safety Report 10784557 (Version 1)
Quarter: 2015Q1

REPORT INFORMATION
  Report Type: Spontaneous
  Country: US (occurrence: None)
  Receive Date: 20150209
  Receipt Date: 20150209
  Transmission Date: 20150721
  Serious: Yes (Life-Threatening, Hospitalization)
  Sender: FDA-Public Use
  Company Number: None

PATIENT
  Sex: Female

DRUGS (1)
  1. CIPROFLOXACIN. [Suspect]
     Active Substance: CIPROFLOXACIN

REACTIONS (10)
  - Arthralgia [None]
  - Muscle spasms [None]
  - Feeling abnormal [None]
  - Panic attack [None]
  - Neuropathy peripheral [None]
  - Toxicity to various agents [None]
  - Pain in extremity [None]
  - Autoimmune thyroiditis [None]
  - Autoimmune disorder [None]
  - Rash [None]
